FAERS Safety Report 6154471-3 (Version None)
Quarter: 2009Q2

REPORT INFORMATION
  Report Type: 
  Country: None (occurrence: None)
  Receive Date: 20090414
  Receipt Date: 20090410
  Transmission Date: 20091009
  Serious: Yes (Other)
  Sender: FDA-Public Use
  Company Number: US-AMGEN-US339393

PATIENT
  Sex: Female
  Weight: 58.5 kg

DRUGS (9)
  1. NPLATE [Suspect]
     Indication: IDIOPATHIC THROMBOCYTOPENIC PURPURA
     Dates: start: 20080925, end: 20081204
  2. AMICAR [Concomitant]
     Dates: start: 20070601
  3. ACYCLOVIR [Concomitant]
     Dates: start: 20070301
  4. AMLODIPINE [Concomitant]
     Dates: start: 20080101
  5. CARVEDILOL [Concomitant]
     Dates: start: 20080101
  6. DAPSONE [Concomitant]
     Dates: start: 20080101
  7. POTASSIUM CHLORIDE [Concomitant]
     Dates: start: 20080101
  8. FUROSEMIDE [Concomitant]
     Dates: start: 20070601
  9. LISINOPRIL [Concomitant]
     Dates: start: 20080101

REACTIONS (2)
  - DRUG INEFFECTIVE [None]
  - PANCYTOPENIA [None]
